FAERS Safety Report 6236645-6 (Version None)
Quarter: 2009Q2

REPORT INFORMATION
  Report Type: 
  Country: None (occurrence: None)
  Receive Date: 20090619
  Receipt Date: 20081103
  Transmission Date: 20091009
  Serious: No
  Sender: FDA-Public Use
  Company Number: US-ASTRAZENECA-2008UW24609

PATIENT
  Age: 77 Year
  Sex: Female
  Weight: 90.7 kg

DRUGS (7)
  1. ATACAND HCT [Suspect]
     Indication: HYPERTENSION
     Dosage: 12.5 MG
     Route: 048
     Dates: start: 20081001
  2. CRESTOR [Concomitant]
     Dosage: 20 MG
     Route: 048
  3. NORVASC [Concomitant]
  4. VITAMIN D [Concomitant]
  5. GENERIC PROTONICS [Concomitant]
  6. FLORICAL [Concomitant]
  7. LISINOPRIL [Concomitant]
     Dates: end: 20081001

REACTIONS (3)
  - COUGH [None]
  - MUSCLE SPASMS [None]
  - RESORPTION BONE INCREASED [None]
